FAERS Safety Report 19446689 (Version 1)
Quarter: 2021Q2

REPORT INFORMATION
  Report Type: Spontaneous
  Country: US (occurrence: US)
  Receive Date: 20210622
  Receipt Date: 20210622
  Transmission Date: 20210717
  Serious: Yes (Other)
  Sender: FDA-Public Use
  Company Number: US-RECORDATI RARE DISEASE INC.-2021002166

PATIENT
  Sex: Female
  Weight: 56 kg

DRUGS (3)
  1. PANHEMATIN [Suspect]
     Active Substance: HEMIN
     Dosage: UNK
     Route: 065
  2. PANHEMATIN [Suspect]
     Active Substance: HEMIN
     Indication: PORPHYRIA ACUTE
     Dosage: UNK
     Route: 065
  3. PANHEMATIN [Suspect]
     Active Substance: HEMIN
     Dosage: 3 MILLIGRAM/KILOGRAM
     Route: 065
     Dates: start: 20210521

REACTIONS (1)
  - Anaphylactic reaction [Recovered/Resolved]
